FAERS Safety Report 14367582 (Version 1)
Quarter: 2018Q1

REPORT INFORMATION
  Report Type: Spontaneous
  Country: US (occurrence: US)
  Receive Date: 20180108
  Receipt Date: 20180108
  Transmission Date: 20180509
  Serious: Yes (Life-Threatening, Hospitalization)
  Sender: FDA-Public Use
  Company Number: None

PATIENT
  Age: 68 Year
  Sex: Male
  Weight: 121.5 kg

DRUGS (6)
  1. XARELTO [Suspect]
     Active Substance: RIVAROXABAN
     Indication: KNEE ARTHROPLASTY
     Route: 048
     Dates: start: 20171213, end: 20171226
  2. INSULIN PUMP [Concomitant]
     Active Substance: INSULIN NOS
  3. ALLOPURINOL. [Concomitant]
     Active Substance: ALLOPURINOL
  4. MS CONTIN [Concomitant]
     Active Substance: MORPHINE SULFATE
  5. AXIRON [Concomitant]
     Active Substance: TESTOSTERONE
  6. CIALIS [Concomitant]
     Active Substance: TADALAFIL

REACTIONS (6)
  - Blood pressure systolic decreased [None]
  - Peripheral swelling [None]
  - Haemorrhage [None]
  - Urinary tract infection [None]
  - Cellulitis [None]
  - Chest pain [None]

NARRATIVE: CASE EVENT DATE: 20171221
